FAERS Safety Report 23930362 (Version 2)
Quarter: 2024Q2

REPORT INFORMATION
  Report Type: Report from Study
  Country: GB (occurrence: GB)
  Receive Date: 20240602
  Receipt Date: 20240603
  Transmission Date: 20240715
  Serious: Yes (Other)
  Sender: FDA-Public Use
  Company Number: GB-JNJFOC-20240579837

PATIENT
  Age: 4 Decade
  Sex: Female

DRUGS (3)
  1. STELARA [Suspect]
     Active Substance: USTEKINUMAB
     Indication: Crohn^s disease
     Route: 058
     Dates: start: 20230112
  2. STELARA [Suspect]
     Active Substance: USTEKINUMAB
  3. COLESEVELAM [Concomitant]
     Active Substance: COLESEVELAM
     Indication: Migraine

REACTIONS (2)
  - Inflammatory marker increased [Unknown]
  - Drug ineffective [Unknown]
